FAERS Safety Report 15454254 (Version 1)
Quarter: 2018Q4

REPORT INFORMATION
  Report Type: Spontaneous
  Country: US (occurrence: US)
  Receive Date: 20181002
  Receipt Date: 20181002
  Transmission Date: 20190204
  Serious: No
  Sender: FDA-Public Use
  Company Number: US-JNJFOC-20180907184

PATIENT
  Age: 31 Year
  Sex: Female
  Weight: 45.36 kg

DRUGS (2)
  1. WOMENS ROGAINE UNSCENTED [Suspect]
     Active Substance: MINOXIDIL
     Indication: ALOPECIA
     Dosage: 1/2 CAPFUL
     Route: 061
     Dates: start: 201808
  2. WOMENS ROGAINE UNSCENTED [Suspect]
     Active Substance: MINOXIDIL
     Route: 061

REACTIONS (4)
  - Skin atrophy [Recovering/Resolving]
  - Skin disorder [Recovering/Resolving]
  - Dark circles under eyes [Recovering/Resolving]
  - Skin wrinkling [Recovering/Resolving]

NARRATIVE: CASE EVENT DATE: 201808
